FAERS Safety Report 13078635 (Version 1)
Quarter: 2017Q1

REPORT INFORMATION
  Report Type: Other
  Country: CA (occurrence: CA)
  Receive Date: 20170102
  Receipt Date: 20170102
  Transmission Date: 20170428
  Serious: Yes (Other)
  Sender: FDA-Public Use
  Company Number: CA-DUCHESNAY INC.-1061433

PATIENT
  Age: 26 Year
  Sex: Female
  Weight: 100 kg

DRUGS (7)
  1. PROCTOFOAM HC [Suspect]
     Active Substance: HYDROCORTISONE ACETATE\PRAMOXINE HYDROCHLORIDE
  2. PRAMOXINE HYDROCHLORIDE. [Suspect]
     Active Substance: PRAMOXINE HYDROCHLORIDE
  3. VANCOMYCIN [Suspect]
     Active Substance: VANCOMYCIN
  4. DILTIAZEM. [Suspect]
     Active Substance: DILTIAZEM
  5. REMICADE [Suspect]
     Active Substance: INFLIXIMAB
     Route: 042
  6. MESALAZINE [Suspect]
     Active Substance: MESALAMINE
  7. DICLEGIS [Suspect]
     Active Substance: DOXYLAMINE SUCCINATE\PYRIDOXINE HYDROCHLORIDE

REACTIONS (6)
  - Off label use [Not Recovered/Not Resolved]
  - Nail infection [Not Recovered/Not Resolved]
  - Frequent bowel movements [Not Recovered/Not Resolved]
  - Haematochezia [Not Recovered/Not Resolved]
  - Product use issue [Not Recovered/Not Resolved]
  - General physical health deterioration [Not Recovered/Not Resolved]
